FAERS Safety Report 12022655 (Version 1)
Quarter: 2016Q1

REPORT INFORMATION
  Report Type: Spontaneous
  Country: US (occurrence: US)
  Receive Date: 20160206
  Receipt Date: 20160206
  Transmission Date: 20160526
  Serious: Yes (Hospitalization)
  Sender: FDA-Public Use
  Company Number: US-ABBVIE-15K-163-1473485-00

PATIENT
  Age: 79 Year
  Sex: Female

DRUGS (3)
  1. CARBIDOPA. [Concomitant]
     Active Substance: CARBIDOPA
     Indication: PRODUCT USED FOR UNKNOWN INDICATION
  2. HUMIRA [Suspect]
     Active Substance: ADALIMUMAB
     Indication: RHEUMATOID ARTHRITIS
     Route: 065
     Dates: start: 2005
  3. ASPIRIN. [Concomitant]
     Active Substance: ASPIRIN
     Indication: PRODUCT USED FOR UNKNOWN INDICATION

REACTIONS (2)
  - Hip fracture [Recovering/Resolving]
  - Fall [Recovered/Resolved]

NARRATIVE: CASE EVENT DATE: 201509
